FAERS Safety Report 16864072 (Version 1)
Quarter: 2019Q3

REPORT INFORMATION
  Report Type: Spontaneous
  Country: US (occurrence: US)
  Receive Date: 20190927
  Receipt Date: 20190927
  Transmission Date: 20191005
  Serious: Yes (Hospitalization)
  Sender: FDA-Public Use
  Company Number: US-SLATE RUN PHARMACEUTICALS-SLTR-AE-19-83

PATIENT
  Age: 84 Year
  Sex: Male

DRUGS (2)
  1. DESVENLAFAXINE ER TABLETS [Suspect]
     Active Substance: DESVENLAFAXINE
     Indication: MAJOR DEPRESSION
  2. DESVENLAFAXINE ER TABLETS [Suspect]
     Active Substance: DESVENLAFAXINE
     Indication: MAJOR DEPRESSION
     Route: 048

REACTIONS (2)
  - Drug withdrawal syndrome [Recovered/Resolved]
  - Dyskinesia [Recovered/Resolved]
